FAERS Safety Report 17190189 (Version 2)
Quarter: 2020Q1

REPORT INFORMATION
  Report Type: Spontaneous
  Country: US (occurrence: US)
  Receive Date: 20191223
  Receipt Date: 20200129
  Transmission Date: 20200409
  Serious: Yes (Death, Life-Threatening, Hospitalization)
  Sender: FDA-Public Use
  Company Number: US-TEVA-2019-US-1154336

PATIENT
  Age: 69 Year
  Sex: Male
  Weight: 81.9 kg

DRUGS (2)
  1. DAUNORUBICIN [Suspect]
     Active Substance: DAUNORUBICIN
     Indication: ACUTE MYELOID LEUKAEMIA
     Dosage: DAUNORUBICIN 60 MG DAILY
     Route: 041
     Dates: start: 20191118, end: 20191120
  2. CYTARABINE. [Suspect]
     Active Substance: CYTARABINE
     Indication: ACUTE MYELOID LEUKAEMIA
     Dosage: 100 MILLIGRAM DAILY;
     Route: 041
     Dates: start: 20191118, end: 20191125

REACTIONS (2)
  - Septic shock [Fatal]
  - Acute respiratory failure [Fatal]
